FAERS Safety Report 4895723-4 (Version None)
Quarter: 2006Q1

REPORT INFORMATION
  Report Type: 
  Country: None (occurrence: None)
  Receive Date: 20060130
  Receipt Date: 20060120
  Transmission Date: 20060701
  Serious: Yes (Other)
  Sender: FDA-Public Use
  Company Number: US-AVENTIS-200610821US

PATIENT
  Sex: Female

DRUGS (14)
  1. LANTUS [Suspect]
     Indication: DIABETES MELLITUS NON-INSULIN-DEPENDENT
     Dosage: DOSE UNIT: UNITS
  2. LANTUS [Suspect]
     Dosage: DOSE: PROGRESSIVE INCREASE IN DOSAGE
  3. LANTUS [Suspect]
     Dosage: DOSE UNIT: UNITS
     Dates: end: 20060120
  4. FLUCONAZOLE [Concomitant]
     Dosage: DOSE: UNK
  5. WARFARIN [Concomitant]
     Dosage: DOSE: UNK
  6. DIAZEPAM [Concomitant]
     Dosage: DOSE: UNK
  7. TOPROL-XL [Concomitant]
  8. LASIX [Concomitant]
     Dosage: DOSE: UNK
  9. EPOGEN [Concomitant]
     Dosage: DOSE: UNK
  10. REGLAN [Concomitant]
     Dosage: DOSE: UNK
  11. PROTONIX [Concomitant]
     Dosage: DOSE: UNK
  12. MAGNESIUM OXIDE [Concomitant]
     Dosage: DOSE: UNK
  13. CATAPRES-TTS-1 [Concomitant]
     Dosage: DOSE: TTS-1
     Route: 061
  14. POTASSIUM CHLORIDE [Concomitant]
     Dosage: DOSE: UNK

REACTIONS (5)
  - BLOOD GLUCOSE INCREASED [None]
  - GLYCOSYLATED HAEMOGLOBIN INCREASED [None]
  - PNEUMONIA [None]
  - URINARY TRACT INFECTION [None]
  - WHITE BLOOD CELL COUNT INCREASED [None]
